FAERS Safety Report 5573128-0 (Version None)
Quarter: 2007Q4

REPORT INFORMATION
  Report Type: 
  Country: None (occurrence: None)
  Receive Date: 20071220
  Receipt Date: 20071220
  Transmission Date: 20080405
  Serious: Yes (Hospitalization)
  Sender: FDA-Public Use
  Company Number: None

PATIENT
  Age: 20 Year
  Sex: Male

DRUGS (1)
  1. PERPHENAZINE [Suspect]
     Indication: SCHIZOAFFECTIVE DISORDER
     Dosage: 12MG  EVERY DAY  PO
     Route: 048
     Dates: start: 20071130, end: 20071210

REACTIONS (4)
  - BLOOD CREATINE PHOSPHOKINASE INCREASED [None]
  - EXTRAPYRAMIDAL DISORDER [None]
  - MUSCLE RIGIDITY [None]
  - PYREXIA [None]
